FAERS Safety Report 18944161 (Version 2)
Quarter: 2021Q1

REPORT INFORMATION
  Report Type: Spontaneous
  Country: SA (occurrence: SA)
  Receive Date: 20210226
  Receipt Date: 20210302
  Transmission Date: 20210420
  Serious: Yes (Other)
  Sender: FDA-Public Use
  Company Number: NVSC2021SA041116

PATIENT
  Sex: Male

DRUGS (1)
  1. EXFORGE [Suspect]
     Active Substance: AMLODIPINE BESYLATE\VALSARTAN
     Indication: HYPERTENSION
     Dosage: UNK, MORE THAN ONE YEAR
     Route: 065
     Dates: start: 2019

REACTIONS (1)
  - Erectile dysfunction [Unknown]

NARRATIVE: CASE EVENT DATE: 202011
